FAERS Safety Report 5154214-6 (Version None)
Quarter: 2006Q4

REPORT INFORMATION
  Report Type: 
  Country: None (occurrence: None)
  Receive Date: 20061114
  Receipt Date: 20061103
  Transmission Date: 20070319
  Serious: Yes (Death, Hospitalization, Other)
  Sender: FDA-Public Use
  Company Number: 06-0137PO FU 1

PATIENT
  Age: 57 Year
  Sex: Male

DRUGS (1)
  1. MEFENAMUSAN, MEFANAMIC ACID, UNK, UNK [Suspect]
     Indication: PYREXIA
     Dosage: 1 CAPSULE  NOS, QD
     Dates: start: 20060129

REACTIONS (6)
  - ESCHERICHIA URINARY TRACT INFECTION [None]
  - LYMPHOCYTE STIMULATION TEST POSITIVE [None]
  - NEPHRITIS INTERSTITIAL [None]
  - RENAL DISORDER [None]
  - RENAL FAILURE ACUTE [None]
  - SUBARACHNOID HAEMORRHAGE [None]
